FAERS Safety Report 22369058 (Version 1)
Quarter: 2023Q2

REPORT INFORMATION
  Report Type: Report from Study
  Country: US (occurrence: US)
  Receive Date: 20230525
  Receipt Date: 20230525
  Transmission Date: 20230722
  Serious: Yes (Death)
  Sender: FDA-Public Use
  Company Number: US-BAUSCH-BL-2021-020898

PATIENT
  Age: 65 Year
  Sex: Male

DRUGS (6)
  1. XIFAXAN [Suspect]
     Active Substance: RIFAXIMIN
     Indication: Hepatic cirrhosis
     Route: 048
     Dates: start: 202011, end: 2021
  2. XIFAXAN [Suspect]
     Active Substance: RIFAXIMIN
     Route: 048
     Dates: start: 2021, end: 202106
  3. XIFAXAN [Suspect]
     Active Substance: RIFAXIMIN
     Dosage: TAKEN SAMPLES
     Route: 048
     Dates: start: 202106, end: 202106
  4. XIFAXAN [Suspect]
     Active Substance: RIFAXIMIN
     Route: 048
  5. PANTOPRAZOLE [Concomitant]
     Active Substance: PANTOPRAZOLE
     Indication: Product used for unknown indication
     Route: 048
  6. LACTULOSE [Concomitant]
     Active Substance: LACTULOSE
     Indication: Product used for unknown indication
     Route: 048

REACTIONS (6)
  - Death [Fatal]
  - Amnesia [Unknown]
  - Product use issue [Unknown]
  - Intentional product use issue [Unknown]
  - Product supply issue [Unknown]
  - Product dose omission issue [Unknown]

NARRATIVE: CASE EVENT DATE: 20210101
